FAERS Safety Report 24429689 (Version 5)
Quarter: 2025Q4

REPORT INFORMATION
  Report Type: Report from Study
  Country: CA (occurrence: CA)
  Receive Date: 20241012
  Receipt Date: 20251027
  Transmission Date: 20260117
  Serious: Yes (Other)
  Sender: BIOCON
  Company Number: CA-BIOCON BIOLOGICS LIMITED-BBL2024004060

PATIENT

DRUGS (5)
  1. HULIO [Suspect]
     Active Substance: ADALIMUMAB-FKJP
     Indication: Crohn^s disease
     Dosage: 160 MG (WEEK 0)
     Route: 058
  2. HULIO [Suspect]
     Active Substance: ADALIMUMAB-FKJP
     Dosage: 80 MG (WEEK 2)
     Route: 058
  3. HULIO [Suspect]
     Active Substance: ADALIMUMAB-FKJP
     Dosage: 40 MILLIGRAM, BIWEEKLY
     Route: 058
     Dates: start: 20240617
  4. HULIO [Suspect]
     Active Substance: ADALIMUMAB-FKJP
  5. HULIO [Suspect]
     Active Substance: ADALIMUMAB-FKJP

REACTIONS (7)
  - Crohn^s disease [Unknown]
  - Rhinorrhoea [Unknown]
  - Oropharyngeal pain [Unknown]
  - Dry skin [Unknown]
  - Diarrhoea [Unknown]
  - Abdominal pain upper [Unknown]
  - Off label use [Unknown]
